FAERS Safety Report 6095041-5 (Version None)
Quarter: 2009Q1

REPORT INFORMATION
  Report Type: 
  Country: None (occurrence: None)
  Receive Date: 20090227
  Receipt Date: 20080104
  Transmission Date: 20090719
  Serious: No
  Sender: FDA-Public Use
  Company Number: A0701467A

PATIENT
  Age: 56 Year
  Sex: Male

DRUGS (4)
  1. LAMICTAL [Suspect]
     Indication: DEPRESSION
     Dosage: 50MG PER DAY
     Route: 048
     Dates: start: 20070601, end: 20070901
  2. ABILIFY [Concomitant]
  3. ADDERALL 10 [Concomitant]
  4. FLOMAX [Concomitant]

REACTIONS (2)
  - BRADYPHRENIA [None]
  - LETHARGY [None]
